FAERS Safety Report 7560007-2 (Version None)
Quarter: 2011Q2

REPORT INFORMATION
  Report Type: 
  Country: None (occurrence: None)
  Receive Date: 20110621
  Receipt Date: 20110609
  Transmission Date: 20111010
  Serious: Yes (Other)
  Sender: FDA-Public Use
  Company Number: PHHY2011US51178

PATIENT
  Sex: Female

DRUGS (7)
  1. SEROQUEL [Concomitant]
     Dosage: UNK UKN, UNK
  2. GILENYA [Suspect]
     Indication: RELAPSING-REMITTING MULTIPLE SCLEROSIS
     Dosage: 0.5 MG, QD
     Route: 048
     Dates: start: 20110601, end: 20110609
  3. LORAZEPAM [Concomitant]
     Dosage: UNK UKN, UNK
  4. ADVAIR DISKUS 100/50 [Concomitant]
     Dosage: UNK UKN, UNK
  5. RITALIN [Concomitant]
     Dosage: UNK UKN, UNK
  6. VENTOLIN HFA [Concomitant]
     Dosage: UNK UKN, UNK
  7. EFFEXOR [Concomitant]
     Dosage: UNK UKN, UNK

REACTIONS (3)
  - CHORIORETINOPATHY [None]
  - VISION BLURRED [None]
  - RETINAL OEDEMA [None]
